FAERS Safety Report 8346061-9 (Version None)
Quarter: 2012Q2

REPORT INFORMATION
  Report Type: 
  Country: None (occurrence: None)
  Receive Date: 20120509
  Receipt Date: 20120504
  Transmission Date: 20120825
  Serious: No
  Sender: FDA-Public Use
  Company Number: US-PFIZER INC-2012093899

PATIENT
  Sex: Male
  Weight: 99 kg

DRUGS (13)
  1. CLONIDINE [Concomitant]
     Indication: BLOOD PRESSURE SYSTOLIC ABNORMAL
     Dosage: UNK, AS NEEDED
     Dates: start: 19730101
  2. SUTENT [Suspect]
     Indication: METASTATIC RENAL CELL CARCINOMA
     Dosage: 50 MG,DAILY (FOR 28 DAYS FOLLOWED BY REST OF 14 DAYS)
     Dates: start: 20120412
  3. PANTOPRAZOLE [Concomitant]
     Dosage: UNK
  4. CARVEDILOL [Concomitant]
     Indication: BLOOD PRESSURE
     Dosage: 25 MG, UNK
     Dates: start: 19730101
  5. HYDROCHLOROTHIAZIDE [Concomitant]
     Indication: BLOOD PRESSURE
     Dosage: 25 MG, UNK
     Dates: start: 19730101
  6. METFORMIN [Concomitant]
     Dosage: 500 MG, 2X/DAY
  7. NORCO [Suspect]
     Indication: BACK PAIN
     Dosage: HYDROCODONE 10/ACETAMINOPHEN 325
  8. TYLENOL (CAPLET) [Suspect]
     Dosage: UNK
  9. ALPRAZOLAM [Concomitant]
     Dosage: 0.5 MG, AS NEEDED
  10. LIPITOR [Concomitant]
     Dosage: 40 MG, UNK
  11. KETOTIFEN [Concomitant]
     Indication: SEASONAL ALLERGY
     Dosage: UNK, AS NEEDED
  12. LOTREL [Concomitant]
     Indication: BLOOD PRESSURE
     Dosage: AMLODIPINE 10/ BENAZEPRIL HYDROCHLORIDE 20
     Dates: start: 19730101
  13. FLONASE [Concomitant]
     Indication: HYPERSENSITIVITY
     Dosage: UNK, AS NEEDED

REACTIONS (5)
  - DYSPEPSIA [None]
  - SOMNOLENCE [None]
  - CONSTIPATION [None]
  - BACK PAIN [None]
  - MUSCULOSKELETAL PAIN [None]
